FAERS Safety Report 5804841-5 (Version None)
Quarter: 2008Q3

REPORT INFORMATION
  Report Type: 
  Country: None (occurrence: None)
  Receive Date: 20080709
  Receipt Date: 20080627
  Transmission Date: 20090109
  Serious: Yes (Other)
  Sender: FDA-Public Use
  Company Number: US-PFIZER INC-2008054502

PATIENT
  Sex: Male

DRUGS (2)
  1. NEURONTIN [Suspect]
     Indication: NERVE INJURY
  2. NEURONTIN [Suspect]
     Indication: NEURALGIA

REACTIONS (8)
  - DELUSION [None]
  - INDIFFERENCE [None]
  - INSOMNIA [None]
  - MALAISE [None]
  - OVERDOSE [None]
  - TREMOR [None]
  - VOMITING [None]
  - WITHDRAWAL SYNDROME [None]
